FAERS Safety Report 10237892 (Version 1)
Quarter: 2014Q2

REPORT INFORMATION
  Report Type: Spontaneous
  Country: US (occurrence: US)
  Receive Date: 20140616
  Receipt Date: 20140616
  Transmission Date: 20141212
  Serious: No
  Sender: FDA-Public Use
  Company Number: US-BIOGENIDEC-2014BI054686

PATIENT
  Age: 67 Year
  Sex: Female

DRUGS (8)
  1. AVONEX [Suspect]
     Indication: MULTIPLE SCLEROSIS
     Route: 030
     Dates: start: 20120306
  2. REBIF [Concomitant]
  3. METAPROTERENOL SULFATE [Concomitant]
  4. LOVASTATIN [Concomitant]
  5. LEVOTHYROXINE SODIUM [Concomitant]
  6. DILTIAZEM HCL [Concomitant]
  7. ATORVASTATIN CALCIUM [Concomitant]
  8. AMBIEN [Concomitant]

REACTIONS (2)
  - Amnesia [Not Recovered/Not Resolved]
  - Cognitive disorder [Not Recovered/Not Resolved]
